FAERS Safety Report 4601417-2 (Version None)
Quarter: 2005Q1

REPORT INFORMATION
  Report Type: 
  Country: None (occurrence: None)
  Receive Date: 20050308
  Receipt Date: 20050215
  Transmission Date: 20050727
  Serious: Yes (Hospitalization)
  Sender: FDA-Public Use
  Company Number: BE-SANOFI-SYNTHELABO-A01200500947

PATIENT
  Age: 82 Year
  Sex: Male

DRUGS (3)
  1. ASPIRIN [Suspect]
     Route: 048
     Dates: end: 20050101
  2. ASPIRIN [Suspect]
     Dosage: UNK
     Route: 065
     Dates: start: 20050101
  3. PLAVIX [Suspect]
     Indication: TRANSIENT ISCHAEMIC ATTACK
     Dosage: UNK
     Route: 048
     Dates: start: 20041201, end: 20050101

REACTIONS (4)
  - CEREBROVASCULAR ACCIDENT [None]
  - DISEASE RECURRENCE [None]
  - FEBRILE NEUTROPENIA [None]
  - HEMIPARESIS [None]
